FAERS Safety Report 8058968-0 (Version None)
Quarter: 2012Q1

REPORT INFORMATION
  Report Type: 
  Country: None (occurrence: None)
  Receive Date: 20120120
  Receipt Date: 20120118
  Transmission Date: 20120608
  Serious: Yes (Death, Hospitalization)
  Sender: FDA-Public Use
  Company Number: CR-B.I. PHARMACEUTICALS,INC./RIDGEFIELD-2012-MX-00018MX

PATIENT
  Sex: Female
  Weight: 74 kg

DRUGS (4)
  1. SPIRIVA [Suspect]
     Indication: CHRONIC OBSTRUCTIVE PULMONARY DISEASE
     Dosage: 18 MCG
     Route: 055
     Dates: start: 20091113
  2. COMBIVENT [Suspect]
  3. NEXIUM [Concomitant]
     Dosage: 20 MG
     Route: 048
  4. CRESTOR [Concomitant]

REACTIONS (2)
  - BRONCHITIS [None]
  - BRONCHOPNEUMONIA [None]
